FAERS Safety Report 5086551-8 (Version None)
Quarter: 2006Q3

REPORT INFORMATION
  Report Type: 
  Country: None (occurrence: None)
  Receive Date: 20060703
  Receipt Date: 20060215
  Transmission Date: 20061208
  Serious: No
  Sender: FDA-Public Use
  Company Number: 2006S1001374

PATIENT
  Age: 40 Year
  Sex: Female

DRUGS (4)
  1. CLOZAPINE [Suspect]
     Dosage: 100 MG; QAM; ORAL, SEE IMAGE
     Route: 048
     Dates: start: 20030801
  2. BENZTROPINE MESYLATE [Concomitant]
  3. TIOTIXENE [Concomitant]
  4. CLONAZEPAM [Concomitant]

REACTIONS (1)
  - GRANULOCYTOPENIA [None]
